FAERS Safety Report 10371575 (Version 1)
Quarter: 2014Q3

REPORT INFORMATION
  Report Type: Spontaneous
  Country: US (occurrence: None)
  Receive Date: 20140807
  Receipt Date: 20140807
  Transmission Date: 20150326
  Serious: No
  Sender: FDA-Public Use
  Company Number: None

PATIENT
  Age: 91 Year
  Sex: Female
  Weight: 61.24 kg

DRUGS (2)
  1. CIPRO [Suspect]
     Active Substance: CIPROFLOXACIN HYDROCHLORIDE
     Indication: CYSTITIS
     Dosage: STRENGTH: 250MG/500  QUANTITY: 100  TWICE A DAY  TWICE A DAY
     Dates: start: 201403, end: 201404
  2. CIPRO [Suspect]
     Active Substance: CIPROFLOXACIN HYDROCHLORIDE
     Indication: KIDNEY INFECTION
     Dosage: STRENGTH: 250MG/500  QUANTITY: 100  TWICE A DAY  TWICE A DAY
     Dates: start: 201403, end: 201404

REACTIONS (5)
  - Wound [None]
  - Impaired healing [None]
  - Tendon disorder [None]
  - Skin infection [None]
  - Tendon rupture [None]
